FAERS Safety Report 6037501-9 (Version None)
Quarter: 2009Q1

REPORT INFORMATION
  Report Type: 
  Country: None (occurrence: None)
  Receive Date: 20090114
  Receipt Date: 20090105
  Transmission Date: 20090719
  Serious: Yes (Other)
  Sender: FDA-Public Use
  Company Number: ES-PFIZER INC-2009152297

PATIENT

DRUGS (4)
  1. AMLODIPINE BESILATE [Suspect]
     Indication: HYPERTENSION
     Dosage: UNK
     Route: 048
  2. OMEPRAZOLE [Concomitant]
     Dosage: UNK
     Route: 048
  3. TORSEMIDE [Concomitant]
     Dosage: UNK
  4. GELOCATIL [Concomitant]
     Dosage: UNK
     Route: 048

REACTIONS (3)
  - FACE OEDEMA [None]
  - LOCALISED OEDEMA [None]
  - OEDEMA PERIPHERAL [None]
